FAERS Safety Report 11208980 (Version 1)
Quarter: 2015Q2

REPORT INFORMATION
  Report Type: Spontaneous
  Country: FR (occurrence: FR)
  Receive Date: 20150622
  Receipt Date: 20150622
  Transmission Date: 20150821
  Serious: Yes (Other)
  Sender: FDA-Public Use
  Company Number: FR-PFIZER INC-2015200607

PATIENT
  Age: 67 Year
  Sex: Female

DRUGS (1)
  1. TAHOR [Suspect]
     Active Substance: ATORVASTATIN CALCIUM
     Indication: HYPERLIPIDAEMIA
     Dosage: UNK
     Route: 048
     Dates: start: 20070615, end: 20130115

REACTIONS (3)
  - Necrotising myositis [Recovered/Resolved]
  - Cerebrovascular accident [Unknown]
  - Limb fracture [Unknown]

NARRATIVE: CASE EVENT DATE: 2012
